FAERS Safety Report 18304152 (Version 11)
Quarter: 2022Q3

REPORT INFORMATION
  Report Type: Spontaneous
  Country: DK (occurrence: DK)
  Receive Date: 20200923
  Receipt Date: 20220819
  Transmission Date: 20221027
  Serious: Yes (Death, Life-Threatening, Hospitalization, Disabling, Congenital Anomaly, Other)
  Sender: FDA-Public Use
  Company Number: DK-GLAXOSMITHKLINE-DK2020EME173108

PATIENT
  Age: 5 Year
  Sex: Male
  Weight: 18 kg

DRUGS (48)
  1. GENTAMICIN [Suspect]
     Active Substance: GENTAMICIN
     Indication: Antibiotic therapy
     Route: 042
  2. GENTAMICIN [Suspect]
     Active Substance: GENTAMICIN
     Indication: Pneumococcal sepsis
  3. GENTAMICIN [Suspect]
     Active Substance: GENTAMICIN
     Indication: Measles immunisation
  4. GENTAMICIN [Suspect]
     Active Substance: GENTAMICIN
     Indication: Antibiotic therapy
  5. GENTAMICIN [Suspect]
     Active Substance: GENTAMICIN
     Indication: Rubella immunisation
  6. GENTAMICIN [Suspect]
     Active Substance: GENTAMICIN
     Indication: Mumps immunisation
  7. ALBUTEROL SULFATE [Suspect]
     Active Substance: ALBUTEROL SULFATE
     Indication: Product used for unknown indication
     Dosage: SALBUTAMOL SULFATE
     Route: 065
  8. DEXTROSE [Suspect]
     Active Substance: DEXTROSE
     Indication: Pneumonia
     Route: 065
  9. SODIUM CHLORIDE [Suspect]
     Active Substance: SODIUM CHLORIDE
     Indication: Pneumonia
     Route: 065
  10. ALBUTEROL [Suspect]
     Active Substance: ALBUTEROL
     Indication: Product used for unknown indication
     Route: 065
  11. CEFUROXIME [Suspect]
     Active Substance: CEFUROXIME
     Indication: Antibiotic therapy
     Route: 065
  12. SODIUM CHLORIDE [Suspect]
     Active Substance: SODIUM CHLORIDE
     Indication: Pneumonia
     Route: 065
  13. MEROPENEM [Suspect]
     Active Substance: MEROPENEM
     Indication: Antibiotic therapy
     Route: 065
  14. PENICILLIN G [Suspect]
     Active Substance: PENICILLIN G
     Indication: Mumps immunisation
     Dosage: UNK
     Route: 065
  15. M-M-RVAXPRO [Suspect]
     Active Substance: MEASLES VIRUS STRAIN ENDERS^ ATTENUATED EDMONSTON LIVE ANTIGEN\MUMPS VIRUS STRAIN B LEVEL JERYL LYNN
     Indication: Pneumococcal sepsis
     Dosage: UNK
     Route: 065
  16. RUBELLA AND MUMPS VIRUS VACCINE, LIVE [Suspect]
     Active Substance: RUBELLA AND MUMPS VIRUS VACCINE, LIVE
     Indication: Product used for unknown indication
     Dosage: UNK
     Route: 065
  17. FENTANYL [Suspect]
     Active Substance: FENTANYL
     Indication: Pneumococcal infection
     Dosage: UNK
     Route: 065
  18. FENTANYL [Suspect]
     Active Substance: FENTANYL
     Indication: Intestinal ischaemia
  19. FENTANYL [Suspect]
     Active Substance: FENTANYL
     Indication: Interstitial lung disease
  20. FENTANYL [Suspect]
     Active Substance: FENTANYL
     Indication: Brain injury
  21. FENTANYL [Suspect]
     Active Substance: FENTANYL
     Indication: Pneumonia aspiration
  22. FENTANYL [Suspect]
     Active Substance: FENTANYL
     Indication: Respiratory tract infection
  23. FENTANYL [Suspect]
     Active Substance: FENTANYL
     Indication: Pneumonia
  24. FENTANYL [Suspect]
     Active Substance: FENTANYL
     Indication: Cerebral ischaemia
  25. ALBUTEROL [Suspect]
     Active Substance: ALBUTEROL
     Indication: Product used for unknown indication
     Dosage: UNK
     Route: 065
  26. AMOXICILLIN\CLAVULANATE POTASSIUM [Suspect]
     Active Substance: AMOXICILLIN\CLAVULANATE POTASSIUM
     Indication: Pneumonia
     Dosage: UNK
     Route: 065
     Dates: start: 20150611
  27. AMOXICILLIN\CLAVULANATE POTASSIUM [Suspect]
     Active Substance: AMOXICILLIN\CLAVULANATE POTASSIUM
     Dosage: UNK
     Route: 065
     Dates: start: 20160714, end: 20160720
  28. DEXTROSE\POTASSIUM CHLORIDE\SODIUM CHLORIDE\SODIUM CITRATE [Suspect]
     Active Substance: DEXTROSE\POTASSIUM CHLORIDE\SODIUM CHLORIDE\SODIUM CITRATE
     Indication: Pneumonia
     Dosage: UNK
     Route: 065
  29. CIPROFLOXACIN [Suspect]
     Active Substance: CIPROFLOXACIN
     Indication: Product used for unknown indication
     Dosage: UNK
     Route: 065
  30. PIPERACILLIN AND TAZOBACTAM [Suspect]
     Active Substance: PIPERACILLIN SODIUM\TAZOBACTAM SODIUM
     Indication: Vomiting
     Dosage: UNK
     Route: 065
  31. PIPERACILLIN AND TAZOBACTAM [Suspect]
     Active Substance: PIPERACILLIN SODIUM\TAZOBACTAM SODIUM
     Indication: Respiratory arrest
  32. PENICILLIN V POTASSIUM [Suspect]
     Active Substance: PENICILLIN V POTASSIUM
     Indication: Antibiotic therapy
     Dosage: UNK
     Route: 065
  33. PULMOZYME [Suspect]
     Active Substance: DORNASE ALFA
     Indication: Interstitial lung disease
     Dosage: UNK
     Route: 065
  34. CEFUROXIME [Suspect]
     Active Substance: CEFUROXIME
     Indication: Antibiotic therapy
     Dosage: UNK
     Route: 042
  35. PROPOFOL [Suspect]
     Active Substance: PROPOFOL
     Indication: Product used for unknown indication
     Dosage: EMULSION FOR INJECTION
     Route: 065
  36. TRISODIUM CITRATE DIHYDRATE [Suspect]
     Active Substance: TRISODIUM CITRATE DIHYDRATE
     Indication: Pneumonia
     Route: 065
  37. AMOXICILLIN\CLAVULANATE POTASSIUM [Suspect]
     Active Substance: AMOXICILLIN\CLAVULANATE POTASSIUM
     Indication: Pneumonia
     Route: 065
     Dates: start: 20150611
  38. AMOXICILLIN\CLAVULANATE POTASSIUM [Suspect]
     Active Substance: AMOXICILLIN\CLAVULANATE POTASSIUM
     Route: 065
     Dates: start: 20160714, end: 20160720
  39. POTASSIUM CHLORIDE [Suspect]
     Active Substance: POTASSIUM CHLORIDE
     Indication: Pneumonia
     Route: 065
  40. POTASSIUM CHLORIDE [Suspect]
     Active Substance: POTASSIUM CHLORIDE
     Indication: Pneumonia
  41. CEFUROXIME SODIUM [Suspect]
     Active Substance: CEFUROXIME SODIUM
     Indication: Antibiotic therapy
     Route: 065
  42. RUBELLA VIRUS STRAIN WISTAR RA 27/3 LIVE ANTIGEN [Suspect]
     Active Substance: RUBELLA VIRUS STRAIN WISTAR RA 27/3 LIVE ANTIGEN
     Indication: Product used for unknown indication
     Route: 065
  43. DORNASE ALFA [Suspect]
     Active Substance: DORNASE ALFA
     Indication: Interstitial lung disease
     Route: 065
  44. DORNASE ALFA [Suspect]
     Active Substance: DORNASE ALFA
     Indication: Interstitial lung disease
     Route: 065
  45. AMOXICILLIN\CLAVULANIC ACID [Suspect]
     Active Substance: AMOXICILLIN\CLAVULANIC ACID
     Indication: Pneumonia
     Route: 065
     Dates: start: 20160714, end: 20160720
  46. AMOXICILLIN\CLAVULANIC ACID [Suspect]
     Active Substance: AMOXICILLIN\CLAVULANIC ACID
     Route: 065
     Dates: start: 20150611, end: 20160720
  47. CLAVULANATE POTASSIUM [Suspect]
     Active Substance: CLAVULANATE POTASSIUM
     Indication: Product used for unknown indication
     Route: 065
  48. VENTOLIN [Suspect]
     Active Substance: ALBUTEROL SULFATE
     Indication: Product used for unknown indication
     Dosage: UNK
     Route: 065

REACTIONS (64)
  - Dehydration [Fatal]
  - Pneumococcal sepsis [Fatal]
  - Atelectasis [Fatal]
  - Pneumonia aspiration [Fatal]
  - Respiratory arrest [Fatal]
  - Pneumonia [Fatal]
  - Circulatory collapse [Fatal]
  - Intestinal ischaemia [Fatal]
  - Interstitial lung disease [Fatal]
  - Respiratory tract infection bacterial [Fatal]
  - Disease complication [Fatal]
  - Tachypnoea [Fatal]
  - Injury [Fatal]
  - Metabolic disorder [Fatal]
  - Cerebral ischaemia [Fatal]
  - Motor dysfunction [Fatal]
  - Lung consolidation [Fatal]
  - Malaise [Fatal]
  - Dysphagia [Fatal]
  - Inflammation [Fatal]
  - Pyrexia [Fatal]
  - Dyspnoea [Fatal]
  - Vomiting [Fatal]
  - Spinal muscular atrophy [Fatal]
  - Increased bronchial secretion [Fatal]
  - Muscular weakness [Fatal]
  - Ascites [Fatal]
  - Muscle atrophy [Fatal]
  - Chest X-ray abnormal [Fatal]
  - Lymphadenectomy [Fatal]
  - Secretion discharge [Fatal]
  - Intestinal ischaemia [Fatal]
  - Brain injury [Fatal]
  - Scoliosis [Fatal]
  - Dysphagia [Fatal]
  - Dyspnoea [Fatal]
  - Lung infiltration [Fatal]
  - Ischaemic cerebral infarction [Fatal]
  - Motor neurone disease [Fatal]
  - Bronchial disorder [Fatal]
  - Pneumonia [Fatal]
  - Lower respiratory tract infection bacterial [Fatal]
  - Pneumonia [Recovered/Resolved]
  - Endotracheal intubation [Fatal]
  - Demyelination [Fatal]
  - Pneumonia [Recovered/Resolved]
  - Ischaemic cerebral infarction [Fatal]
  - Pneumonia [Recovered/Resolved]
  - Brain injury [Fatal]
  - Ischaemic cerebral infarction [Not Recovered/Not Resolved]
  - Cerebral ischaemia [Fatal]
  - Diarrhoea [Fatal]
  - Resuscitation [Fatal]
  - Diarrhoea [Recovered/Resolved]
  - Sputum increased [Fatal]
  - Chest X-ray abnormal [Fatal]
  - Condition aggravated [Fatal]
  - Stoma closure [Fatal]
  - Mechanical ventilation [Fatal]
  - Stoma closure [Fatal]
  - Positive airway pressure therapy [Fatal]
  - Endotracheal intubation [Fatal]
  - Positive airway pressure therapy [Fatal]
  - Dehydration [Fatal]

NARRATIVE: CASE EVENT DATE: 20160620
